FAERS Safety Report 15084132 (Version 1)
Quarter: 2018Q3

REPORT INFORMATION
  Report Type: Report from Study
  Country: JP (occurrence: JP)
  Receive Date: 20180628
  Receipt Date: 20180628
  Transmission Date: 20181010
  Serious: Yes (Death, Other)
  Sender: FDA-Public Use
  Company Number: JP-MYLANLABS-2018M1047032

PATIENT
  Age: 49 Year
  Sex: Female

DRUGS (2)
  1. DOCETAXEL. [Suspect]
     Active Substance: DOCETAXEL
     Indication: OESOPHAGEAL CANCER METASTATIC
     Dosage: PLANNED TO RECEIVE IV DRIP INFUSION OF DOCETAXEL 50 MG/M2 ON DAY 1 EVERY 4 WEEKS FOR 3 CYCLES
     Route: 041
  2. WILMS TUMOR GENE 1 (WT1) PEPTIDE?PULSED DENDRITIC CELL VACCINATION [Suspect]
     Active Substance: INVESTIGATIONAL PRODUCT
     Indication: OESOPHAGEAL CANCER METASTATIC
     Dosage: PLANNED TO RECEIVE 1X10E7 CELLS ON DAYS 15 AND 22 EVERY 4 WEEKS FOR 3 CYCLES; INJECTED INTO THE D...
     Route: 023

REACTIONS (1)
  - Tumour haemorrhage [Fatal]
